FAERS Safety Report 16420326 (Version 1)
Quarter: 2019Q2

REPORT INFORMATION
  Report Type: Spontaneous
  Country: AR (occurrence: AR)
  Receive Date: 20190612
  Receipt Date: 20190612
  Transmission Date: 20190711
  Serious: Yes (Hospitalization, Other)
  Sender: FDA-Public Use
  Company Number: AR-009507513-1905ARG005960

PATIENT
  Age: 81 Year
  Sex: Female
  Weight: 75 kg

DRUGS (1)
  1. KEYTRUDA [Suspect]
     Active Substance: PEMBROLIZUMAB
     Indication: METASTATIC MALIGNANT MELANOMA
     Dosage: 200MG, 21 DAYS CYCLES
     Route: 042
     Dates: start: 201806, end: 201809

REACTIONS (6)
  - Tonsillar hypertrophy [Recovering/Resolving]
  - Asthenia [Recovered/Resolved]
  - Malignant neoplasm progression [Unknown]
  - Vitiligo [Recovering/Resolving]
  - Lung disorder [Unknown]
  - Immune-mediated adverse reaction [Unknown]

NARRATIVE: CASE EVENT DATE: 2018
